FAERS Safety Report 10619154 (Version 1)
Quarter: 2014Q4

REPORT INFORMATION
  Report Type: Spontaneous
  Country: US (occurrence: None)
  Receive Date: 20141126
  Receipt Date: 20141126
  Transmission Date: 20150529
  Serious: Yes (Disabling, Other)
  Sender: FDA-Public Use
  Company Number: 2014-20421

PATIENT
  Age: 94 Year
  Sex: Female

DRUGS (1)
  1. EYLEA [Suspect]
     Active Substance: AFLIBERCEPT
     Indication: AGE-RELATED MACULAR DEGENERATION
     Dosage: AS NCESSARY
     Route: 031
     Dates: start: 20140926

REACTIONS (3)
  - Blindness [None]
  - Vitritis [None]
  - Non-infectious endophthalmitis [None]

NARRATIVE: CASE EVENT DATE: 201409
